FAERS Safety Report 10174367 (Version 1)
Quarter: 2014Q2

REPORT INFORMATION
  Report Type: Spontaneous
  Country: US (occurrence: None)
  Receive Date: 20140416
  Receipt Date: 20140416
  Transmission Date: 20141212
  Serious: Yes (Hospitalization)
  Sender: FDA-Public Use
  Company Number: 163-POMAL-13120542

PATIENT
  Age: 64 Year
  Sex: Male
  Weight: 81.6 kg

DRUGS (6)
  1. POMALYST (POMALIDOMIDE) (4 MILLIGRAM, CAPSULES) [Suspect]
     Indication: PLASMA CELL MYELOMA
     Dosage: 21 IN 28 D
     Route: 048
     Dates: start: 201304
  2. DECADRON (DEXAMETHASONE) (UNKNOWN) [Concomitant]
  3. VITAMIN D (ERGOCALCIFEROL) (UNKNOWN) [Concomitant]
  4. COLACE (DOCUSATE SODIUM) (TABLETS) [Concomitant]
  5. BACLOFEN (BACLOFEN) (UNKNOWN) [Concomitant]
  6. SIMVASTATIN (SIMVASTATIN) (UNKNOWN) [Concomitant]

REACTIONS (1)
  - Urinary tract infection [None]
